FAERS Safety Report 5490397-6 (Version None)
Quarter: 2007Q4

REPORT INFORMATION
  Report Type: 
  Country: None (occurrence: None)
  Receive Date: 20071019
  Receipt Date: 20071010
  Transmission Date: 20080405
  Serious: Yes (Hospitalization)
  Sender: FDA-Public Use
  Company Number: PHBS2007JP16966

PATIENT
  Age: 82 Year
  Sex: Female
  Weight: 75.7 kg

DRUGS (6)
  1. METYRAPONE [Suspect]
     Indication: PITUITARY-DEPENDENT CUSHING'S SYNDROME
     Dosage: 750 MG/D
     Route: 065
  2. METYRAPONE [Suspect]
     Dosage: 1000 MG/D
     Route: 065
  3. METYRAPONE [Suspect]
     Dosage: 750 MG/D
     Route: 065
  4. METYRAPONE [Suspect]
     Dosage: 500 MG/D
     Route: 065
  5. METYRAPONE [Suspect]
     Dosage: 750 MG/D
     Route: 065
  6. HYDROCORTISONE [Concomitant]
     Dosage: 10 MG, QD
     Route: 048

REACTIONS (9)
  - ANOREXIA [None]
  - BACTERIAL INFECTION [None]
  - BLOOD BETA-D-GLUCAN INCREASED [None]
  - HYPOALBUMINAEMIA [None]
  - LUNG INFILTRATION [None]
  - MALAISE [None]
  - OEDEMA PERIPHERAL [None]
  - PNEUMOCYSTIS JIROVECI PNEUMONIA [None]
  - PO2 DECREASED [None]
